FAERS Safety Report 18039310 (Version 2)
Quarter: 2020Q3

REPORT INFORMATION
  Report Type: Spontaneous
  Country: AU (occurrence: AU)
  Receive Date: 20200718
  Receipt Date: 20200806
  Transmission Date: 20201103
  Serious: Yes (Other)
  Sender: FDA-Public Use
  Company Number: AU-ALEXION-A202010141

PATIENT
  Sex: Female

DRUGS (4)
  1. SOLIRIS [Suspect]
     Active Substance: ECULIZUMAB
     Indication: ATYPICAL HAEMOLYTIC URAEMIC SYNDROME
     Dosage: 900 MG , ONCE A WEEK
     Route: 042
     Dates: start: 20171213, end: 20180113
  2. SOLIRIS [Suspect]
     Active Substance: ECULIZUMAB
     Dosage: 1200 MG , ONCE A WEEK
     Route: 042
     Dates: start: 20180113, end: 20191211
  3. DARBEPOETIN ALFA [Concomitant]
     Active Substance: DARBEPOETIN ALFA
     Indication: PRODUCT USED FOR UNKNOWN INDICATION
     Dosage: UNK
     Route: 065
  4. SOLIRIS [Suspect]
     Active Substance: ECULIZUMAB
     Dosage: UNK
     Route: 065
     Dates: start: 20200720

REACTIONS (8)
  - Renal impairment [Not Recovered/Not Resolved]
  - Adverse drug reaction [Unknown]
  - Blood lactate dehydrogenase increased [Recovered/Resolved]
  - Cardiac disorder [Not Recovered/Not Resolved]
  - General physical health deterioration [Not Recovered/Not Resolved]
  - Haptoglobin decreased [Recovered/Resolved]
  - Condition aggravated [Not Recovered/Not Resolved]
  - Atypical haemolytic uraemic syndrome [Recovered/Resolved]
